FAERS Safety Report 12412429 (Version 1)
Quarter: 2016Q2

REPORT INFORMATION
  Report Type: Report from Study
  Country: JP (occurrence: JP)
  Receive Date: 20160527
  Receipt Date: 20160527
  Transmission Date: 20160815
  Serious: Yes (Hospitalization, Disabling)
  Sender: FDA-Public Use
  Company Number: JP-AMGEN-JPNCT2016067840

PATIENT
  Age: 78 Year
  Sex: Female
  Weight: 54 kg

DRUGS (15)
  1. DARBEPOETIN ALFA [Suspect]
     Active Substance: DARBEPOETIN ALFA
     Indication: PRODUCT USED FOR UNKNOWN INDICATION
     Dosage: 120 MUG, Q2WK
     Route: 065
     Dates: start: 20160106
  2. DIOVAN [Suspect]
     Active Substance: VALSARTAN
     Indication: HYPERTENSION
     Dosage: 80 MG, QD
     Route: 048
     Dates: start: 20090417
  3. FEBURIC [Suspect]
     Active Substance: FEBUXOSTAT
     Indication: HYPERURICAEMIA
     Dosage: 10 MG, QD
     Route: 048
     Dates: start: 20150601
  4. GLUCOSE [Suspect]
     Active Substance: DEXTROSE
     Indication: IRON DEFICIENCY ANAEMIA
     Dosage: 8 ML, UNK
     Route: 042
     Dates: start: 20160401, end: 20160506
  5. FERRUM [Suspect]
     Active Substance: FERROUS FUMARATE
     Indication: IRON DEFICIENCY ANAEMIA
     Dosage: 100 MG, QD
     Route: 048
     Dates: start: 20160205
  6. KREMEZIN [Suspect]
     Active Substance: ACTIVATED CHARCOAL
     Indication: CHRONIC KIDNEY DISEASE
     Dosage: 2 G, TID
     Route: 048
     Dates: start: 20160205, end: 20160518
  7. FESIN [Suspect]
     Active Substance: IRON SUCROSE
     Indication: IRON DEFICIENCY ANAEMIA
     Dosage: 40 MG, UNK
     Route: 042
     Dates: start: 20160401, end: 20160506
  8. ARTIST [Suspect]
     Active Substance: CARVEDILOL
     Indication: HYPERTENSION
     Dosage: 10 MG, QD
     Route: 048
     Dates: start: 20090417
  9. NORVASC [Suspect]
     Active Substance: AMLODIPINE BESYLATE
     Indication: HYPERTENSION
     Dosage: 10 MG, QD
     Route: 048
     Dates: start: 20090417
  10. JUSO [Suspect]
     Active Substance: SODIUM BICARBONATE
     Indication: ACIDOSIS
     Dosage: 2 G, TID
     Route: 048
     Dates: start: 20150605, end: 20160518
  11. LASIX [Suspect]
     Active Substance: FUROSEMIDE
     Indication: OEDEMA DUE TO RENAL DISEASE
     Dosage: 40 MG, QD
     Route: 048
     Dates: start: 20160122
  12. KINEDAK [Suspect]
     Active Substance: EPALRESTAT
     Indication: DIABETIC NEUROPATHY
     Dosage: 50 MG, TID
     Route: 048
     Dates: start: 20090724
  13. TENELIA [Suspect]
     Active Substance: TENELIGLIPTIN
     Indication: DIABETES MELLITUS
     Dosage: 20 MG, QD
     Route: 048
     Dates: start: 20160219
  14. LIPITOR [Suspect]
     Active Substance: ATORVASTATIN CALCIUM
     Indication: HYPERLIPIDAEMIA
     Dosage: 10 MG, QD
     Route: 048
     Dates: start: 20090417
  15. EDIROL [Suspect]
     Active Substance: ELDECALCITOL
     Indication: OSTEOPOROSIS
     Dosage: 0.75 MUG, QD
     Route: 048
     Dates: start: 20150807

REACTIONS (1)
  - Haemodialysis [Recovered/Resolved with Sequelae]

NARRATIVE: CASE EVENT DATE: 20160518
